FAERS Safety Report 6381983-X (Version None)
Quarter: 2009Q3

REPORT INFORMATION
  Report Type: 
  Country: None (occurrence: None)
  Receive Date: 20090930
  Receipt Date: 20090923
  Transmission Date: 20100115
  Serious: Yes (Other)
  Sender: FDA-Public Use
  Company Number: GB-ROCHE-658431

PATIENT
  Age: 10 Year
  Sex: Female

DRUGS (1)
  1. TAMIFLU [Suspect]
     Route: 065
     Dates: start: 20090920, end: 20090920

REACTIONS (1)
  - HALLUCINATION [None]
